FAERS Safety Report 10058385 (Version 1)
Quarter: 2014Q2

REPORT INFORMATION
  Report Type: Spontaneous
  Country: US (occurrence: None)
  Receive Date: 20140403
  Receipt Date: 20140403
  Transmission Date: 20141212
  Serious: Yes (Hospitalization, Other)
  Sender: FDA-Public Use
  Company Number: None

PATIENT
  Age: 13 Year
  Sex: Female
  Weight: 40 kg

DRUGS (12)
  1. CRIZOTINIB [Suspect]
     Indication: NON-HODGKIN^S LYMPHOMA
     Route: 048
     Dates: start: 201401, end: 201402
  2. CYCLOPHOSPHAMIDE [Concomitant]
  3. ACYCLOVIR [Concomitant]
  4. MUPIROCIN [Concomitant]
  5. DEXAMETHASONE [Concomitant]
  6. FAMOTIDINE [Concomitant]
  7. PEDS ONCOLOGY SALT/SODA ORAL RINSE [Concomitant]
  8. LEUCOVORIN [Concomitant]
  9. DOXORUBICIN [Concomitant]
  10. METHOTREXATE [Concomitant]
  11. ZOFRAN [Concomitant]
  12. AMLODIPINE [Concomitant]

REACTIONS (2)
  - Generalised tonic-clonic seizure [None]
  - Posterior reversible encephalopathy syndrome [None]
